FAERS Safety Report 9493854 (Version 2)
Quarter: 2013Q3

REPORT INFORMATION
  Report Type: Report from Study
  Country: DE (occurrence: DE)
  Receive Date: 20130902
  Receipt Date: 20130902
  Transmission Date: 20140515
  Serious: Yes (Hospitalization)
  Sender: FDA-Public Use
  Company Number: DE-ROCHE-723630

PATIENT
  Age: 44 Year
  Sex: Male
  Weight: 73 kg

DRUGS (12)
  1. RITUXIMAB [Suspect]
     Indication: B-CELL LYMPHOMA
     Dosage: TEMPORARILY INTERRUPTED, FORM: INFUSION
     Route: 042
     Dates: start: 20100621, end: 20100726
  2. BENDAMUSTINE [Suspect]
     Indication: B-CELL LYMPHOMA
     Dosage: FORM:INFUSION,FREQUENCY:DAY1+2 EVERY 28D,TEMPORARILY INTERRUPTED,LAST DOSE PRIORTO SAE:3 AUGUST 2010
     Route: 042
  3. METOCLOPRAMID [Concomitant]
     Route: 065
     Dates: start: 20100621
  4. CO-TRIMOXAZOLE [Concomitant]
     Route: 065
  5. GRANISETRON [Concomitant]
     Dosage: REPORTED BRAND NAME: GRANISETRON ACTAVIS
     Route: 065
     Dates: start: 20100813, end: 20100817
  6. TAVANIC [Concomitant]
     Route: 065
     Dates: start: 20100814, end: 20100815
  7. INVANZ [Concomitant]
     Indication: DIARRHOEA
     Route: 065
     Dates: start: 20100812, end: 20100813
  8. PARACETAMOL [Concomitant]
     Route: 065
     Dates: start: 20100720
  9. SOLU-DECORTIN [Concomitant]
     Route: 065
     Dates: start: 20130621
  10. NEUPOGEN [Concomitant]
     Route: 065
  11. OMEPRAZOLE [Concomitant]
     Route: 065
     Dates: start: 20100726
  12. LEVOFLOXACIN [Concomitant]

REACTIONS (2)
  - Transaminases increased [Unknown]
  - Blood bilirubin increased [Unknown]
